FAERS Safety Report 17263588 (Version 1)
Quarter: 2020Q1

REPORT INFORMATION
  Report Type: Spontaneous
  Country: ES (occurrence: ES)
  Receive Date: 20200113
  Receipt Date: 20200113
  Transmission Date: 20200409
  Serious: Yes (Hospitalization, Other)
  Sender: FDA-Public Use
  Company Number: ES-SA-2020SA006585

PATIENT
  Age: 39 Year
  Sex: Female

DRUGS (2)
  1. TOUJEO [Suspect]
     Active Substance: INSULIN GLARGINE
     Dosage: 5-6 PENS
     Route: 065
     Dates: start: 20180528, end: 20180531
  2. NOVORAPID [Suspect]
     Active Substance: INSULIN ASPART
     Dosage: 5-6 PENS
     Route: 065
     Dates: start: 20180528, end: 20180528

REACTIONS (2)
  - Suicide attempt [Unknown]
  - Hypoglycaemia [Recovered/Resolved]

NARRATIVE: CASE EVENT DATE: 20180528
